FAERS Safety Report 7049744-6 (Version None)
Quarter: 2010Q4

REPORT INFORMATION
  Report Type: 
  Country: None (occurrence: None)
  Receive Date: 20101018
  Receipt Date: 20101007
  Transmission Date: 20110411
  Serious: Yes (Other)
  Sender: FDA-Public Use
  Company Number: B0677241A

PATIENT
  Age: 55 Year
  Sex: Male
  Weight: 62 kg

DRUGS (5)
  1. ALKERAN [Suspect]
     Indication: PRODUCT USED FOR UNKNOWN INDICATION
     Route: 048
     Dates: end: 20040601
  2. PREDNISOLONE [Concomitant]
     Dosage: 60MG PER DAY
     Route: 048
     Dates: start: 20010301
  3. ENDOXAN [Concomitant]
  4. SOLU-MEDROL [Concomitant]
     Route: 042
  5. CYCLOPHOSPHAMIDE [Concomitant]

REACTIONS (6)
  - ANAEMIA [None]
  - HAEMANGIOMA [None]
  - OEDEMA PERIPHERAL [None]
  - PIGMENTATION DISORDER [None]
  - PLEURAL EFFUSION [None]
  - RENAL IMPAIRMENT [None]
